FAERS Safety Report 6231895-7 (Version None)
Quarter: 2009Q2

REPORT INFORMATION
  Report Type: 
  Country: None (occurrence: None)
  Receive Date: 20090612
  Receipt Date: 20090604
  Transmission Date: 20091009
  Serious: Yes (Life-Threatening, Hospitalization)
  Sender: FDA-Public Use
  Company Number: 2009EU002219

PATIENT
  Age: 57 Year
  Sex: Female

DRUGS (3)
  1. PROGRAF [Suspect]
     Indication: LIVER TRANSPLANT
     Dosage: IV NOS; ORAL
  2. HEPARIN [Concomitant]
  3. PROTEIN C (COAGULATION INHIBITOR) (PROTEIN C (COAGULATION INHIBITOR)) [Concomitant]

REACTIONS (2)
  - OVERDOSE [None]
  - THROMBOCYTOPENIA [None]
